FAERS Safety Report 11509447 (Version 2)
Quarter: 2025Q4

REPORT INFORMATION
  Report Type: Report from Study
  Country: PK (occurrence: PK)
  Receive Date: 20150915
  Receipt Date: 20251205
  Transmission Date: 20260118
  Serious: Yes (Hospitalization, Other)
  Sender: INCYTE
  Company Number: PK-002147023-PHHY2015PK106317

PATIENT
  Age: 40 Year
  Weight: 67 kg

DRUGS (2)
  1. RUXOLITINIB [Suspect]
     Active Substance: RUXOLITINIB
     Indication: Essential thrombocythaemia
     Dosage: 15 MG, UNK
  2. RUXOLITINIB [Suspect]
     Active Substance: RUXOLITINIB
     Dosage: 20 MG, UNK

REACTIONS (4)
  - Abdominal pain [Recovering/Resolving]
  - Platelet count increased [Unknown]
  - Leukocytosis [Unknown]
  - Haemoglobin decreased [Unknown]
